FAERS Safety Report 17025534 (Version 1)
Quarter: 2019Q4

REPORT INFORMATION
  Report Type: Spontaneous
  Country: ZA (occurrence: ZA)
  Receive Date: 20191113
  Receipt Date: 20191113
  Transmission Date: 20200122
  Serious: Yes (Hospitalization)
  Sender: FDA-Public Use
  Company Number: ZA-ELI_LILLY_AND_COMPANY-ZA201911002632

PATIENT
  Age: 96 Year
  Sex: Female

DRUGS (8)
  1. LASIX FUROSEMIDE [Concomitant]
     Indication: DIURETIC THERAPY
     Dosage: 20 MG, UNKNOWN
  2. ZARTAN [Concomitant]
     Indication: HYPERTENSION
     Dosage: 50 MG
     Route: 048
  3. CALCIFEROL COLECALCIFEROL [Concomitant]
     Indication: PRODUCT USED FOR UNKNOWN INDICATION
     Dosage: UNK
  4. CYMGEN 60MG [Suspect]
     Active Substance: DULOXETINE HYDROCHLORIDE
     Indication: DEPRESSION
     Dosage: 60 MG, UNK
     Route: 048
  5. SPIRACTIN SPIRONOLACTONE [Concomitant]
     Indication: DIURETIC THERAPY
     Dosage: 25 MG, UNKNOWN
     Route: 048
  6. MACRODANTIN [Concomitant]
     Active Substance: NITROFURANTOIN
     Indication: URINARY TRACT INFECTION
     Dosage: 100 MG, UNKNOWN
     Route: 048
  7. TOPZOLE [Concomitant]
     Active Substance: PANTOPRAZOLE SODIUM
     Indication: ULCER
     Dosage: 40 MG, UNKNOWN
  8. AVAMYS [Suspect]
     Active Substance: FLUTICASONE FUROATE
     Indication: SEASONAL ALLERGY
     Dosage: 27 UG, UNKNOWN
     Route: 045

REACTIONS (2)
  - Myocardial infarction [Unknown]
  - Cerebrovascular accident [Unknown]

NARRATIVE: CASE EVENT DATE: 20191101
